FAERS Safety Report 5488375-6 (Version None)
Quarter: 2007Q4

REPORT INFORMATION
  Report Type: 
  Country: None (occurrence: None)
  Receive Date: 20071017
  Receipt Date: 20071010
  Transmission Date: 20080405
  Serious: Yes (Hospitalization)
  Sender: FDA-Public Use
  Company Number: B0491221A

PATIENT
  Age: 70 Year
  Sex: Male

DRUGS (4)
  1. ARIXTRA [Suspect]
     Route: 058
     Dates: start: 20070901
  2. LOVENOX [Suspect]
     Dates: start: 20070913, end: 20070919
  3. INNOHEP [Suspect]
     Dates: start: 20070919, end: 20070924
  4. ORGARAN [Suspect]
     Dates: start: 20070901, end: 20070901

REACTIONS (7)
  - C-REACTIVE PROTEIN INCREASED [None]
  - DEEP VEIN THROMBOSIS [None]
  - GENERAL PHYSICAL HEALTH DETERIORATION [None]
  - HEPARIN-INDUCED THROMBOCYTOPENIA [None]
  - INCISION SITE HAEMATOMA [None]
  - PULMONARY EMBOLISM [None]
  - PYREXIA [None]
